FAERS Safety Report 22118559 (Version 2)
Quarter: 2023Q1

REPORT INFORMATION
  Report Type: Spontaneous
  Country: US (occurrence: US)
  Receive Date: 20230321
  Receipt Date: 20230321
  Transmission Date: 20230418
  Serious: Yes (Other)
  Sender: FDA-Public Use
  Company Number: US-AMGEN-USASP2023048406

PATIENT
  Age: 69 Year
  Sex: Female
  Weight: 72.8 kg

DRUGS (9)
  1. NEULASTA [Suspect]
     Active Substance: PEGFILGRASTIM
     Indication: Product used for unknown indication
     Dosage: UNK
     Route: 065
  2. BLINATUMOMAB [Suspect]
     Active Substance: BLINATUMOMAB
     Indication: Acute lymphocytic leukaemia
     Dosage: UNK
     Route: 065
     Dates: end: 20220616
  3. CYCLOPHOSPHAMIDE [Suspect]
     Active Substance: CYCLOPHOSPHAMIDE
     Dosage: 840 MILLIGRAM
     Route: 065
     Dates: end: 20220903
  4. CYTARABINE [Suspect]
     Active Substance: CYTARABINE
     Dosage: 70 MILLIGRAM
     Route: 065
     Dates: end: 20220905
  5. SPRYCEL [Suspect]
     Active Substance: DASATINIB
     Dosage: 1470 MILLIGRAM
     Route: 065
     Dates: end: 20220920
  6. DEXAMETHASONE [Suspect]
     Active Substance: DEXAMETHASONE
     Dosage: 80 MILLIGRAM
     Route: 065
     Dates: end: 20220915
  7. DOXORUBICIN HYDROCHLORIDE [Suspect]
     Active Substance: DOXORUBICIN HYDROCHLORIDE
     Dosage: 46 MILLIGRAM
     Route: 065
     Dates: end: 20220904
  8. METHOTREXATE [Suspect]
     Active Substance: METHOTREXATE
     Dosage: 12.5 MILLIGRAM
     Route: 065
     Dates: end: 20220829
  9. VINCRISTINE SULFATE [Suspect]
     Active Substance: VINCRISTINE SULFATE
     Dosage: 4 MILLIGRAM
     Route: 065
     Dates: end: 20220912

REACTIONS (1)
  - Enterocolitis infectious [Recovering/Resolving]

NARRATIVE: CASE EVENT DATE: 20220920
